FAERS Safety Report 6612313-3 (Version None)
Quarter: 2010Q1

REPORT INFORMATION
  Report Type: 
  Country: None (occurrence: None)
  Receive Date: 20100302
  Receipt Date: 20100302
  Transmission Date: 20100710
  Serious: Yes (Hospitalization)
  Sender: FDA-Public Use
  Company Number: None

PATIENT
  Sex: Female
  Weight: 65.7716 kg

DRUGS (2)
  1. FOSAMAX [Suspect]
     Indication: OSTEOPENIA
     Dosage: 35 MG. WEEKLY PO
     Route: 048
     Dates: start: 20050601, end: 20060701
  2. ALENDDRONATE 70 MG COBALT LABORATORIES [Suspect]
     Indication: OSTEOPENIA
     Dosage: 79 MG. WEEKLY PO
     Route: 048
     Dates: start: 20060701, end: 20091115

REACTIONS (5)
  - FALL [None]
  - FEMUR FRACTURE [None]
  - GAIT DISTURBANCE [None]
  - PAIN IN EXTREMITY [None]
  - PRODUCT SUBSTITUTION ISSUE [None]
